FAERS Safety Report 24053380 (Version 1)
Quarter: 2024Q3

REPORT INFORMATION
  Report Type: Spontaneous
  Country: US (occurrence: US)
  Receive Date: 20240705
  Receipt Date: 20240705
  Transmission Date: 20241016
  Serious: No
  Sender: JOHNSON AND JOHNSON
  Company Number: US-JNJFOC-20240669919

PATIENT

DRUGS (1)
  1. ROGAINE [Suspect]
     Active Substance: MINOXIDIL
     Indication: Product used for unknown indication
     Route: 061
     Dates: start: 2023, end: 2024

REACTIONS (5)
  - Condition aggravated [Unknown]
  - Dandruff [Unknown]
  - Application site pruritus [Unknown]
  - Application site exfoliation [Unknown]
  - Drug ineffective [Unknown]
